FAERS Safety Report 20213835 (Version 10)
Quarter: 2022Q2

REPORT INFORMATION
  Report Type: Spontaneous
  Country: JP (occurrence: None)
  Receive Date: 20211221
  Receipt Date: 20220620
  Transmission Date: 20220721
  Serious: Yes (Death, Hospitalization, Other)
  Sender: FDA-Public Use
  Company Number: 2021A886441

PATIENT
  Age: 61 Year
  Sex: Male
  Weight: 91 kg

DRUGS (18)
  1. IMFINZI [Suspect]
     Active Substance: DURVALUMAB
     Indication: Small cell lung cancer
     Route: 041
     Dates: start: 20210908, end: 20211110
  2. HYDROMORPHONE HYDROCHLORIDE [Suspect]
     Active Substance: HYDROMORPHONE HYDROCHLORIDE
     Route: 065
  3. PREDONINE [Suspect]
     Active Substance: PREDNISOLONE
     Indication: Encephalitis
     Route: 048
     Dates: start: 20220112, end: 20220118
  4. PREDONINE [Suspect]
     Active Substance: PREDNISOLONE
     Indication: Encephalitis
     Route: 048
     Dates: start: 20220119, end: 20220125
  5. PREDONINE [Suspect]
     Active Substance: PREDNISOLONE
     Indication: Encephalitis
     Route: 048
     Dates: start: 20220126, end: 20220201
  6. PREDONINE [Suspect]
     Active Substance: PREDNISOLONE
     Indication: Encephalitis
     Route: 048
     Dates: start: 20220202, end: 20220209
  7. PREDONINE [Suspect]
     Active Substance: PREDNISOLONE
     Indication: Encephalitis
     Route: 048
     Dates: start: 20220209, end: 20220212
  8. ETOPOSIDE [Concomitant]
     Active Substance: ETOPOSIDE
     Indication: Small cell lung cancer
     Dosage: ON DAY 1, 2 AND 3 OF EACH CYCLE
     Route: 065
     Dates: start: 20210908, end: 20211112
  9. CARBOPLATIN [Concomitant]
     Active Substance: CARBOPLATIN
     Indication: Small cell lung cancer
     Route: 065
     Dates: start: 20210908, end: 20211110
  10. ROSUVASTATIN [Concomitant]
     Active Substance: ROSUVASTATIN
     Indication: Dyslipidaemia
     Route: 048
  11. LINZESS [Concomitant]
     Active Substance: LINACLOTIDE
     Indication: Constipation
     Route: 048
  12. MAGNESIUM OXIDE [Concomitant]
     Active Substance: MAGNESIUM OXIDE
     Indication: Constipation
     Route: 048
  13. SENNOSIDES [Concomitant]
     Active Substance: SENNOSIDES
     Indication: Constipation
     Route: 048
  14. PANTETHINE [Concomitant]
     Active Substance: PANTETHINE
     Indication: Constipation
     Route: 048
  15. ACETAMINOPHEN [Concomitant]
     Active Substance: ACETAMINOPHEN
     Indication: Metastases to bone
     Route: 048
  16. CALCIUM CARBONATE\CHOLECALCIFEROL\MAGNESIUM CARBONATE [Concomitant]
     Active Substance: CALCIUM CARBONATE\CHOLECALCIFEROL\MAGNESIUM CARBONATE
     Indication: Hypocalcaemia
     Dosage: AFTER BREAKFAST
     Route: 048
  17. DENOSUMAB [Concomitant]
     Active Substance: DENOSUMAB
     Indication: Metastases to bone
     Route: 058
     Dates: start: 20210928, end: 20220120
  18. ATOVAQUONE [Concomitant]
     Active Substance: ATOVAQUONE
     Indication: Pneumocystis jirovecii pneumonia
     Dosage: AFTER BREAKFAST
     Route: 048

REACTIONS (12)
  - Toxic encephalopathy [Fatal]
  - Choking sensation [Fatal]
  - Ileus [Unknown]
  - Aspiration [Unknown]
  - Asphyxia [Fatal]
  - Cardio-respiratory arrest [Fatal]
  - Pneumonia aspiration [Recovering/Resolving]
  - Nausea [Unknown]
  - Anorectal disorder [Unknown]
  - Cytomegalovirus infection [Recovering/Resolving]
  - Hyponatraemia [Recovering/Resolving]
  - Constipation [Not Recovered/Not Resolved]

NARRATIVE: CASE EVENT DATE: 20210101
